FAERS Safety Report 8066554-1 (Version None)
Quarter: 2012Q1

REPORT INFORMATION
  Report Type: 
  Country: None (occurrence: None)
  Receive Date: 20120124
  Receipt Date: 20120116
  Transmission Date: 20120608
  Serious: Yes (Hospitalization)
  Sender: FDA-Public Use
  Company Number: PHHY2012TR004141

PATIENT
  Age: 37 Year
  Sex: Male

DRUGS (3)
  1. CLONAZEPAM [Concomitant]
  2. CARBAMAZEPINE [Suspect]
     Indication: EPILEPSY
     Dosage: 800 MG/DAY
  3. LAMOTRIGINE [Concomitant]
     Indication: EPILEPSY

REACTIONS (12)
  - HYPOGAMMAGLOBULINAEMIA [None]
  - C-REACTIVE PROTEIN INCREASED [None]
  - THROMBOCYTOPENIA [None]
  - CONVULSION [None]
  - PSEUDOMONAS INFECTION [None]
  - FLANK PAIN [None]
  - URINARY TRACT INFECTION [None]
  - ESCHERICHIA INFECTION [None]
  - PYREXIA [None]
  - LEUKOCYTOSIS [None]
  - KLEBSIELLA INFECTION [None]
  - RASH MACULO-PAPULAR [None]
